FAERS Safety Report 18523635 (Version 1)
Quarter: 2020Q4

REPORT INFORMATION
  Report Type: Report from Study
  Country: DE (occurrence: JP)
  Receive Date: 20201119
  Receipt Date: 20201119
  Transmission Date: 20210114
  Serious: Yes (Other)
  Sender: FDA-Public Use
  Company Number: JP-ELI_LILLY_AND_COMPANY-JP201706011235

PATIENT
  Age: 66 Year
  Sex: Male

DRUGS (1)
  1. CETUXIMAB. [Suspect]
     Active Substance: CETUXIMAB
     Indication: HEAD AND NECK CANCER
     Dosage: UNK, UNKNOWN
     Route: 042
     Dates: start: 20160526, end: 20170302

REACTIONS (5)
  - Sepsis [Recovering/Resolving]
  - Blood creatine increased [Recovered/Resolved]
  - Hypokalaemia [Recovered/Resolved]
  - Device related infection [Recovering/Resolving]
  - Dehydration [Unknown]

NARRATIVE: CASE EVENT DATE: 20161005
